FAERS Safety Report 6998587-8 (Version None)
Quarter: 2010Q3

REPORT INFORMATION
  Report Type: 
  Country: None (occurrence: None)
  Receive Date: 20100920
  Receipt Date: 20091229
  Transmission Date: 20110219
  Serious: Yes (Other)
  Sender: FDA-Public Use
  Company Number: US-ASTRAZENECA-2009UW21101

PATIENT
  Age: 37 Year
  Sex: Female
  Weight: 162.4 kg

DRUGS (10)
  1. SEROQUEL [Suspect]
     Indication: DEPRESSION
     Route: 048
     Dates: start: 20010401, end: 20011011
  2. SEROQUEL [Suspect]
     Indication: NERVOUSNESS
     Route: 048
     Dates: start: 20010401, end: 20011011
  3. SEROQUEL [Suspect]
     Indication: BIPOLAR DISORDER
     Route: 048
     Dates: start: 20010401, end: 20011011
  4. CELEXA [Concomitant]
     Indication: DEPRESSION
  5. COGENTIN [Concomitant]
     Indication: DEPRESSION
  6. ZYPREXA [Concomitant]
     Indication: DEPRESSION
     Dates: start: 20000401
  7. RISPERDAL [Concomitant]
  8. PAXIL [Concomitant]
  9. DESYROD [Concomitant]
  10. NEROTIN [Concomitant]

REACTIONS (3)
  - KETOACIDOSIS [None]
  - PANCREATITIS [None]
  - TYPE 2 DIABETES MELLITUS [None]
